FAERS Safety Report 15720500 (Version 1)
Quarter: 2018Q4

REPORT INFORMATION
  Report Type: Spontaneous
  Country: CA (occurrence: CA)
  Receive Date: 20181213
  Receipt Date: 20181213
  Transmission Date: 20190205
  Serious: Yes (Hospitalization, Other)
  Sender: FDA-Public Use
  Company Number: CA-ELI_LILLY_AND_COMPANY-CA201812001140

PATIENT

DRUGS (2)
  1. EFFEXOR [Concomitant]
     Active Substance: VENLAFAXINE HYDROCHLORIDE
     Indication: PRODUCT USED FOR UNKNOWN INDICATION
     Dosage: UNK, UNKNOWN
     Route: 065
  2. ZYPREXA [Suspect]
     Active Substance: OLANZAPINE
     Indication: PRODUCT USED FOR UNKNOWN INDICATION
     Dosage: UNK, UNKNOWN
     Route: 065

REACTIONS (9)
  - Headache [Unknown]
  - Hormone level abnormal [Unknown]
  - Terminal state [Unknown]
  - Generalised tonic-clonic seizure [Unknown]
  - Brain injury [Unknown]
  - Seizure [Unknown]
  - Post-traumatic stress disorder [Unknown]
  - Diabetes mellitus [Unknown]
  - Fibromyalgia [Unknown]
